FAERS Safety Report 6738090-3 (Version None)
Quarter: 2010Q2

REPORT INFORMATION
  Report Type: 
  Country: None (occurrence: None)
  Receive Date: 20100520
  Receipt Date: 20100511
  Transmission Date: 20101027
  Serious: Yes (Other)
  Sender: FDA-Public Use
  Company Number: 009133

PATIENT
  Sex: Male
  Weight: 83 kg

DRUGS (3)
  1. CERTOLIZUMAB PEGOL (CERTOLIZUMAB PEGOL) [Suspect]
     Indication: RHEUMATOID ARTHRITIS
     Dosage: 200 MG  1X/2 WEEKS; SUBCUTANEOUS
     Route: 058
     Dates: start: 20090501
  2. IBUPROFEN [Concomitant]
  3. CALCIMAX D3 [Concomitant]

REACTIONS (3)
  - GAMMOPATHY [None]
  - LYMPHOMA [None]
  - PLASMACYTOMA [None]
